FAERS Safety Report 7432525-9 (Version None)
Quarter: 2011Q2

REPORT INFORMATION
  Report Type: 
  Country: None (occurrence: None)
  Receive Date: 20110422
  Receipt Date: 20110421
  Transmission Date: 20111010
  Serious: Yes (Other)
  Sender: FDA-Public Use
  Company Number: US-ABBOTT-11P-163-0720717-00

PATIENT
  Age: 33 Year
  Sex: Female

DRUGS (3)
  1. ATRIPLA [Suspect]
     Indication: ANTIRETROVIRAL THERAPY
     Dosage: TAKEN AT CONCEPTION
     Route: 048
  2. KALETRA [Suspect]
     Indication: ANTIRETROVIRAL THERAPY
     Dosage: TABS/CAPS NOT TAKEN AT CONCEPTION
     Route: 048
     Dates: start: 20110323
  3. COMBIVIR [Suspect]
     Indication: ANTIRETROVIRAL THERAPY
     Dosage: TABS/CAPS NOT TAKEN AT CONCEPTION
     Route: 048
     Dates: start: 20110323

REACTIONS (4)
  - HYPERTENSION [None]
  - OBESITY [None]
  - UNWANTED PREGNANCY [None]
  - ABORTION INDUCED [None]
